FAERS Safety Report 19178669 (Version 6)
Quarter: 2022Q2

REPORT INFORMATION
  Report Type: Report from Study
  Country: EG (occurrence: EG)
  Receive Date: 20210426
  Receipt Date: 20220603
  Transmission Date: 20220721
  Serious: Yes (Other)
  Sender: FDA-Public Use
  Company Number: NVSC2021EG091223

PATIENT
  Sex: Male

DRUGS (5)
  1. GILENYA [Suspect]
     Active Substance: FINGOLIMOD HYDROCHLORIDE
     Indication: Multiple sclerosis
     Dosage: 0.5 MG, QD
     Route: 048
     Dates: start: 202012
  2. GILENYA [Suspect]
     Active Substance: FINGOLIMOD HYDROCHLORIDE
     Dosage: 0.5 QD
     Route: 048
     Dates: start: 202104
  3. OMEGA-3 ACIDS [Concomitant]
     Active Substance: OMEGA-3 FATTY ACIDS
     Indication: Supplementation therapy
     Dosage: 1 DOSAGE FORM, QD
     Route: 065
     Dates: start: 202012
  4. MULTI RELAX [Concomitant]
     Indication: Muscle relaxant therapy
     Dosage: 1 DOSAGE FORM, PRN
     Route: 065
     Dates: start: 202112
  5. DEVAROL [Concomitant]
     Indication: Product used for unknown indication
     Dosage: UNK, QMO
     Route: 065

REACTIONS (15)
  - Intraocular pressure increased [Not Recovered/Not Resolved]
  - Optic neuritis [Not Recovered/Not Resolved]
  - White blood cell count decreased [Unknown]
  - Vision blurred [Recovering/Resolving]
  - Headache [Recovering/Resolving]
  - Multiple sclerosis [Unknown]
  - Eye pain [Recovering/Resolving]
  - Neck pain [Recovering/Resolving]
  - Hypoaesthesia [Not Recovered/Not Resolved]
  - Asthenia [Not Recovered/Not Resolved]
  - Sleep disorder [Not Recovered/Not Resolved]
  - Immune system disorder [Unknown]
  - Hepatic enzyme increased [Unknown]
  - Product prescribing error [Unknown]
  - Off label use [Not Recovered/Not Resolved]

NARRATIVE: CASE EVENT DATE: 20210101
